FAERS Safety Report 6761868-7 (Version None)
Quarter: 2010Q2

REPORT INFORMATION
  Report Type: 
  Country: None (occurrence: None)
  Receive Date: 20100609
  Receipt Date: 20100604
  Transmission Date: 20101027
  Serious: Yes (Death, Hospitalization, Other)
  Sender: FDA-Public Use
  Company Number: PHHY2009CA25967

PATIENT
  Sex: Male

DRUGS (17)
  1. EXJADE [Suspect]
     Indication: MYELODYSPLASTIC SYNDROME
     Dosage: 1000 MG DAILY
     Route: 048
     Dates: start: 20081001
  2. EXJADE [Suspect]
     Indication: IRON OVERLOAD
  3. NITROSPRAY [Suspect]
     Dosage: AS NEEDED
     Route: 065
  4. NOVOLIN [Concomitant]
     Dosage: 30/70 75 IN THE MORNING AND 75 AT SUPPER
     Route: 065
  5. HYDROXYUREA [Concomitant]
     Dosage: 500 MG, QD
     Route: 065
  6. ALLOPURINOL [Concomitant]
     Dosage: 200 MG, QD
     Route: 065
  7. FUROSEMIDE [Concomitant]
     Dosage: 40 MG, QD
     Route: 065
  8. GABAPENTIN [Concomitant]
     Dosage: 300 MG, QD
     Route: 065
  9. RABEPRAZOLE SODIUM [Concomitant]
     Dosage: 20 MG, QD
     Route: 065
  10. LEVOCARB [Concomitant]
     Dosage: 25-100 MG BID
     Route: 065
  11. ACEBUTOLOL [Concomitant]
     Dosage: 100 MG, QD
     Route: 065
  12. RANITIDINE [Concomitant]
     Dosage: 30 MG, QD
     Route: 065
  13. LIPITOR [Concomitant]
     Dosage: 20 MG, QD
     Route: 065
  14. NORVASC [Concomitant]
     Dosage: 2.5 MG
     Route: 065
  15. KAYEXALATE [Concomitant]
     Dosage: 5-6 GLASSES OF WATER PRN (AS NEEDED)
     Route: 065
  16. KOFEX [Concomitant]
     Dosage: PRN (AS NEEDED)
     Route: 065
  17. OXYCET [Concomitant]
     Dosage: PRN (AS NEEDED)
     Route: 065

REACTIONS (4)
  - DEATH [None]
  - DIARRHOEA [None]
  - EPISTAXIS [None]
  - INFLUENZA [None]
